FAERS Safety Report 9570873 (Version 3)
Quarter: 2013Q4

REPORT INFORMATION
  Report Type: Spontaneous
  Country: AU (occurrence: AU)
  Receive Date: 20131001
  Receipt Date: 20131031
  Transmission Date: 20140711
  Serious: Yes (Other)
  Sender: FDA-Public Use
  Company Number: AU-ASTRAZENECA-2013SE68586

PATIENT
  Age: 57 Year
  Sex: Female

DRUGS (4)
  1. SYMBICORT TURBUHALER [Suspect]
     Indication: ASTHMA
     Dosage: 200/6, 2 PUFFS TWO TIMES A DAY IN WINTER AND IF SEVERE AS MEINTENANCE DOSE
     Route: 055
  2. SYMBICORT TURBUHALER [Suspect]
     Indication: ASTHMA
     Dosage: 200/6, 1 PUFF TWO TIMES A DAY IN SUMMER
     Route: 055
  3. SYMBICORT TURBUHALER [Suspect]
     Indication: ASTHMA
     Route: 055
  4. INZA [Concomitant]
     Indication: ARTHRITIS
     Dosage: 1 PUFF DAILY
     Route: 048

REACTIONS (2)
  - Asthma [Unknown]
  - Drug effect decreased [Unknown]
